FAERS Safety Report 23377143 (Version 1)
Quarter: 2024Q1

REPORT INFORMATION
  Report Type: Spontaneous
  Country: US (occurrence: US)
  Receive Date: 20240108
  Receipt Date: 20240108
  Transmission Date: 20240410
  Serious: No
  Sender: FDA-Public Use
  Company Number: US-SANDOZ-SDZ2024US001780

PATIENT
  Age: 64 Year
  Sex: Male

DRUGS (1)
  1. HYRIMOZ [Suspect]
     Active Substance: ADALIMUMAB-ADAZ
     Indication: Ankylosing spondylitis
     Dosage: 40 MG ,ONCE EVERY TWO WEEKS
     Route: 058
     Dates: start: 202312, end: 202312

REACTIONS (2)
  - Cyst [Recovered/Resolved]
  - Pain [Unknown]

NARRATIVE: CASE EVENT DATE: 20230701
